FAERS Safety Report 14301482 (Version 2)
Quarter: 2017Q4

REPORT INFORMATION
  Report Type: Report from Study
  Country: ES (occurrence: ES)
  Receive Date: 20171219
  Receipt Date: 20171222
  Transmission Date: 20180321
  Serious: Yes (Hospitalization, Other)
  Sender: FDA-Public Use
  Company Number: ES-GLAXOSMITHKLINE-ES2017GSK192980

PATIENT
  Sex: Female
  Weight: 50.1 kg

DRUGS (3)
  1. MEPOLIZUMAB [Suspect]
     Active Substance: MEPOLIZUMAB
     Indication: HYPEREOSINOPHILIC SYNDROME
     Dosage: UNK
  2. DEFLAZACORT [Concomitant]
     Active Substance: DEFLAZACORT
     Indication: EOSINOPHILIA
     Dosage: 12 MG, EVERY OTHER DAY
     Route: 048
     Dates: start: 201305, end: 20171208
  3. DEFLAZACORT [Concomitant]
     Active Substance: DEFLAZACORT
     Dosage: 6 MG, EVERY OTHER DAY
     Route: 048
     Dates: start: 201305, end: 20171208

REACTIONS (2)
  - Condition aggravated [Recovered/Resolved]
  - Hypereosinophilic syndrome [Recovered/Resolved]

NARRATIVE: CASE EVENT DATE: 20171208
